FAERS Safety Report 14102428 (Version 7)
Quarter: 2017Q4

REPORT INFORMATION
  Report Type: Report from Study
  Country: FI (occurrence: FI)
  Receive Date: 20171018
  Receipt Date: 20171229
  Transmission Date: 20180321
  Serious: Yes (Hospitalization)
  Sender: FDA-Public Use
  Company Number: FI-ROCHE-2006331

PATIENT
  Age: 45 Year
  Sex: Male
  Weight: 60 kg

DRUGS (12)
  1. METHYLPREDNISOLONE. [Concomitant]
     Active Substance: METHYLPREDNISOLONE
     Dosage: SUBSEQUENT DOSE RECEIVED ON: 14/FEB/2012 (125 MG), 31/JUL/2012 (125 MG), 13/AUG/2012 (125 MG), 07/JA
     Route: 065
  2. OCRELIZUMAB. [Suspect]
     Active Substance: OCRELIZUMAB
     Route: 042
     Dates: start: 20160915, end: 20160915
  3. PARACETAMOL [Concomitant]
     Active Substance: ACETAMINOPHEN
     Dosage: SUBSEQUENT DOSE RECEIVED ON: 14/FEB/2012, 31/JUL/2012, 13/AUG/2012, 07/JAN/2013, 21/JAN/2013, 17/JUN
     Route: 065
  4. OCRELIZUMAB. [Suspect]
     Active Substance: OCRELIZUMAB
     Route: 042
     Dates: start: 20160331, end: 20160331
  5. OCRELIZUMAB. [Suspect]
     Active Substance: OCRELIZUMAB
     Route: 042
     Dates: start: 20160901, end: 20160901
  6. OCRELIZUMAB. [Suspect]
     Active Substance: OCRELIZUMAB
     Route: 042
     Dates: start: 20170214, end: 20170214
  7. PARACETAMOL [Concomitant]
     Active Substance: ACETAMINOPHEN
     Route: 065
     Dates: start: 20130328, end: 20130403
  8. CALCICHEW D3 [Concomitant]
     Active Substance: CALCIUM\CHOLECALCIFEROL
     Dosage: 500 MG/ 20 MCG
     Route: 048
  9. HISTEC [Concomitant]
     Active Substance: CETIRIZINE HYDROCHLORIDE
     Dosage: SUBSEQUENT DOSE RECEIVED ON: 14/FEB/2012, 31/JUL/2012, 13/AUG/2012, 07/JAN/2013, 21/JAN/2013, 17/JUN
     Route: 065
     Dates: start: 20120131
  10. OCRELIZUMAB. [Suspect]
     Active Substance: OCRELIZUMAB
     Indication: PRIMARY PROGRESSIVE MULTIPLE SCLEROSIS
     Dosage: SUBSEQUENT DOSE RECEIVED ON: 14/FEB/2012, 31/JUL/2012, 13/AUG/2012, 07/JAN/2013, 21/JAN/2013, 17/JUN
     Route: 042
     Dates: start: 20120131, end: 20160316
  11. OCRELIZUMAB. [Suspect]
     Active Substance: OCRELIZUMAB
     Indication: PRIMARY PROGRESSIVE MULTIPLE SCLEROSIS
     Dosage: TWO IV INFUSIONS OF OCRELIZUMAB 300 MG SEPARATED BY 14 DAY FOR CYCLE 1 AND SINGLE IV INFUSION OF OCR
     Route: 042
     Dates: start: 20160317, end: 20160317
  12. OCRELIZUMAB. [Suspect]
     Active Substance: OCRELIZUMAB
     Route: 042
     Dates: start: 20170816, end: 20170816

REACTIONS (1)
  - Tubulointerstitial nephritis [Recovered/Resolved]

NARRATIVE: CASE EVENT DATE: 20170913
